FAERS Safety Report 15134472 (Version 1)
Quarter: 2018Q3

REPORT INFORMATION
  Report Type: Spontaneous
  Country: FR (occurrence: FR)
  Receive Date: 20180712
  Receipt Date: 20180712
  Transmission Date: 20181010
  Serious: Yes (Other)
  Sender: FDA-Public Use
  Company Number: FR-PFIZER INC-2018273680

PATIENT
  Age: 54 Year
  Sex: Male
  Weight: 85 kg

DRUGS (26)
  1. VFEND [Suspect]
     Active Substance: VORICONAZOLE
     Indication: ANTIFUNGAL TREATMENT
     Dosage: 600 MG, 1X/DAY
     Route: 042
     Dates: start: 20180521, end: 20180523
  2. METRONIDAZOLE B BRAUN [Concomitant]
     Active Substance: METRONIDAZOLE
     Dosage: UNK
  3. CEFEPIME [Concomitant]
     Active Substance: CEFEPIME HYDROCHLORIDE
     Dosage: UNK
  4. OLIMEL E [Concomitant]
     Active Substance: AMINO ACIDS\DEXTROSE\ELECTROLYTES NOS\SOYBEAN OIL
     Dosage: UNK
  5. IPRATROPIUM MYLAN [Concomitant]
     Active Substance: IPRATROPIUM
     Dosage: UNK
  6. EPREX [Concomitant]
     Active Substance: ERYTHROPOIETIN
     Dosage: UNK
  7. TIORFAN [Concomitant]
     Active Substance: RACECADOTRIL
     Dosage: UNK
  8. AMIKACINE MYLAN [Concomitant]
     Active Substance: AMIKACIN
     Dosage: UNK
  9. BRICANYL [Concomitant]
     Active Substance: TERBUTALINE SULFATE
     Dosage: UNK
  10. TOPALGIC (TRAMADOL HYDROCHLORIDE) [Suspect]
     Active Substance: TRAMADOL HYDROCHLORIDE
     Indication: ORAL PAIN
     Dosage: 200 MG, 1X/DAY
     Route: 042
     Dates: start: 20180520, end: 20180521
  11. FUNGIZONE [Concomitant]
     Active Substance: AMPHOTERICIN B
     Dosage: UNK
  12. MOVICOL [Concomitant]
     Active Substance: POLYETHYLENE GLYCOL 3350\POTASSIUM CHLORIDE\SODIUM BICARBONATE\SODIUM CHLORIDE
     Dosage: UNK
  13. PARACETAMOL [Concomitant]
     Active Substance: ACETAMINOPHEN
     Dosage: UNK
  14. IMOVANE [Concomitant]
     Active Substance: ZOPICLONE
     Dosage: UNK
  15. POTASSIUM CHLORIDE B BRAUN [Concomitant]
     Dosage: UNK
  16. ZARZIO [Concomitant]
     Active Substance: FILGRASTIM
     Dosage: UNK
  17. BECILAN [Concomitant]
     Active Substance: PYRIDOXINE
     Dosage: UNK
  18. ONDANSETRON ACCORD [Concomitant]
     Active Substance: ONDANSETRON
     Dosage: UNK
  19. FLUCONAZOLE KABI [Suspect]
     Active Substance: FLUCONAZOLE
     Indication: ANTIFUNGAL TREATMENT
     Dosage: 200 MG, UNK
     Route: 042
     Dates: start: 20180520, end: 20180521
  20. PRIMPERAN [Suspect]
     Active Substance: METOCLOPRAMIDE HYDROCHLORIDE
     Indication: NAUSEA
     Dosage: UNK
     Route: 042
     Dates: start: 20180521, end: 20180522
  21. NEFOPAM HYDROCHLORIDE [Concomitant]
     Active Substance: NEFOPAM HYDROCHLORIDE
     Dosage: UNK
  22. MEROPENEM ACTAVIS [Concomitant]
     Active Substance: MEROPENEM
     Dosage: UNK
  23. BEVITINE [Concomitant]
     Active Substance: THIAMINE HYDROCHLORIDE
     Dosage: UNK
  24. VITAMIN K1 [Concomitant]
     Active Substance: PHYTONADIONE
     Dosage: UNK
  25. ACICLOVIR MYLAN /00587301/ [Concomitant]
     Active Substance: ACYCLOVIR
  26. PIPERACILLINE TAZOBACTAM MYLAN [Concomitant]
     Active Substance: PIPERACILLIN SODIUM\TAZOBACTAM SODIUM
     Dosage: UNK

REACTIONS (4)
  - Stupor [Recovered/Resolved]
  - Hallucinations, mixed [Recovered/Resolved]
  - Altered state of consciousness [Recovered/Resolved]
  - Tremor [Recovered/Resolved]

NARRATIVE: CASE EVENT DATE: 20180522
